FAERS Safety Report 4814659-8 (Version None)
Quarter: 2005Q4

REPORT INFORMATION
  Report Type: 
  Country: None (occurrence: None)
  Receive Date: 20051028
  Receipt Date: 20051019
  Transmission Date: 20060501
  Serious: Yes (Other)
  Sender: FDA-Public Use
  Company Number: US-GLAXOSMITHKLINE-A0578857A

PATIENT
  Age: 60 Year
  Sex: Female

DRUGS (1)
  1. GAVISCON [Suspect]
     Route: 048
     Dates: start: 19800101

REACTIONS (1)
  - IRON DEFICIENCY ANAEMIA [None]
